FAERS Safety Report 10042367 (Version 1)
Quarter: 2014Q1

REPORT INFORMATION
  Report Type: Spontaneous
  Country: GB (occurrence: GB)
  Receive Date: 20140327
  Receipt Date: 20140327
  Transmission Date: 20141002
  Serious: Yes (Hospitalization)
  Sender: FDA-Public Use
  Company Number: GB-TEVA-471095ISR

PATIENT
  Age: 88 Year
  Sex: Female

DRUGS (5)
  1. MIRTAZAPINE [Suspect]
     Indication: DEPRESSION
     Dosage: AT NIGHT.
     Route: 048
     Dates: end: 20140226
  2. OMEPRAZOLE [Suspect]
     Route: 048
     Dates: end: 20140226
  3. PREDNISOLONE [Suspect]
     Indication: POLYMYALGIA RHEUMATICA
     Route: 048
  4. XARELTO [Suspect]
     Indication: DEEP VEIN THROMBOSIS
     Route: 048
     Dates: end: 20140226
  5. SENNA [Suspect]
     Indication: CONSTIPATION
     Dosage: WHEN REQUIRED
     Route: 048

REACTIONS (1)
  - Neutropenia [Recovering/Resolving]
